FAERS Safety Report 4683849-X (Version None)
Quarter: 2005Q2

REPORT INFORMATION
  Report Type: 
  Country: None (occurrence: None)
  Receive Date: 20050502
  Receipt Date: 20050412
  Transmission Date: 20051028
  Serious: Yes (Hospitalization)
  Sender: FDA-Public Use
  Company Number: USA050495502

PATIENT
  Age: 49 Year
  Sex: Female
  Weight: 82 kg

DRUGS (14)
  1. CYMBALTA [Suspect]
     Indication: DEPRESSION
     Dosage: 90 MG DAY
     Dates: start: 20040101
  2. WELLBUTRIN SR [Concomitant]
  3. ZONEGRAN [Concomitant]
  4. XANAX(ALPRAZOLAM DUM) [Concomitant]
  5. TOPROL-XL [Concomitant]
  6. LIPITOR [Concomitant]
  7. MIACALCIN [Concomitant]
  8. MAXALT(RIZATRIPTAN) [Concomitant]
  9. PHENERGAN [Concomitant]
  10. LORTAB [Concomitant]
  11. TILADE(NEDOCROMIL SODIUM) [Concomitant]
  12. ALBUTEROL [Concomitant]
  13. ORAL CONTRACEPTIVE NOS [Concomitant]
  14. NEXIUM [Concomitant]

REACTIONS (6)
  - ASTHENIA [None]
  - DRUG INEFFECTIVE [None]
  - MIGRAINE [None]
  - NEGATIVISM [None]
  - PRESCRIBED OVERDOSE [None]
  - SUICIDE ATTEMPT [None]
